FAERS Safety Report 11772736 (Version 1)
Quarter: 2015Q4

REPORT INFORMATION
  Report Type: Spontaneous
  Country: US (occurrence: US)
  Receive Date: 20151124
  Receipt Date: 20151124
  Transmission Date: 20160304
  Serious: Yes (Hospitalization)
  Sender: FDA-Public Use
  Company Number: US-MALLINCKRODT-T201504022

PATIENT
  Age: 14 Year
  Sex: Male

DRUGS (5)
  1. GABLOFEN [Suspect]
     Active Substance: BACLOFEN
     Indication: MUSCLE SPASTICITY
     Dosage: 180 MCG/DAY
     Route: 037
     Dates: end: 20111229
  2. GABLOFEN [Suspect]
     Active Substance: BACLOFEN
     Dosage: 1000 MCG/ML AT A DOSE OF 74.9 MCG/DAY
     Route: 037
  3. GABLOFEN [Suspect]
     Active Substance: BACLOFEN
     Dosage: 198 MCG/DAY
     Route: 037
     Dates: start: 20111229, end: 20120126
  4. GABLOFEN [Suspect]
     Active Substance: BACLOFEN
     Dosage: 249.8 MCG/DAY
     Route: 037
     Dates: start: 20120312
  5. GABLOFEN [Suspect]
     Active Substance: BACLOFEN
     Dosage: 220 MCG/DAY
     Route: 037
     Dates: start: 20120126, end: 20120312

REACTIONS (6)
  - Muscle spasticity [Unknown]
  - Drug withdrawal syndrome [Unknown]
  - Sedation [Unknown]
  - Hypotonia [Unknown]
  - Device occlusion [Recovered/Resolved]
  - Urinary tract infection [Unknown]

NARRATIVE: CASE EVENT DATE: 201112
